FAERS Safety Report 8201751-3 (Version None)
Quarter: 2012Q1

REPORT INFORMATION
  Report Type: 
  Country: None (occurrence: None)
  Receive Date: 20120312
  Receipt Date: 20120306
  Transmission Date: 20120608
  Serious: Yes (Other)
  Sender: FDA-Public Use
  Company Number: US-PFIZER INC-2012044899

PATIENT
  Sex: Female
  Weight: 69.841 kg

DRUGS (3)
  1. LUMIGAN [Suspect]
     Indication: GLAUCOMA
     Dosage: UNK, 1X/DAY
     Dates: start: 20120201
  2. TRAVATAN [Suspect]
     Indication: GLAUCOMA
     Dosage: UNK
  3. XALATAN [Suspect]
     Indication: GLAUCOMA
     Dosage: 1 DROP IN BOTH EYES ONCE A DAY

REACTIONS (9)
  - CAROTID ARTERY OCCLUSION [None]
  - INTRAOCULAR PRESSURE INCREASED [None]
  - BLOOD CHOLESTEROL INCREASED [None]
  - BLOOD TRIGLYCERIDES INCREASED [None]
  - HYPERSENSITIVITY [None]
  - LOW DENSITY LIPOPROTEIN INCREASED [None]
  - SINUSITIS [None]
  - BLINDNESS UNILATERAL [None]
  - EYE DISORDER [None]
